FAERS Safety Report 5239652-5 (Version None)
Quarter: 2007Q1

REPORT INFORMATION
  Report Type: 
  Country: None (occurrence: None)
  Receive Date: 20070216
  Receipt Date: 20070213
  Transmission Date: 20070707
  Serious: Yes (Other)
  Sender: FDA-Public Use
  Company Number: 2007UW02885

PATIENT
  Age: 56 Year
  Sex: Female
  Weight: 111.1 kg

DRUGS (3)
  1. ARIMIDEX [Suspect]
     Indication: BREAST CANCER
     Route: 048
  2. COUMADIN [Concomitant]
  3. FOSAMAX [Concomitant]

REACTIONS (9)
  - ABDOMINAL DISTENSION [None]
  - AGGRESSION [None]
  - DEPRESSION [None]
  - DIZZINESS [None]
  - HOT FLUSH [None]
  - INSOMNIA [None]
  - MOOD SWINGS [None]
  - SUICIDAL IDEATION [None]
  - WEIGHT INCREASED [None]
